FAERS Safety Report 9767366 (Version 1)
Quarter: 2013Q4

REPORT INFORMATION
  Report Type: Spontaneous
  Country: PL (occurrence: PL)
  Receive Date: 20131217
  Receipt Date: 20131217
  Transmission Date: 20140711
  Serious: Yes (Disabling)
  Sender: FDA-Public Use
  Company Number: PL-ACTAVIS-2013-22541

PATIENT
  Age: 59 Year
  Sex: Male

DRUGS (2)
  1. CISPLATIN [Suspect]
     Indication: LUNG CARCINOMA CELL TYPE UNSPECIFIED STAGE 0
     Dosage: 185.81 MG, DAILY
     Route: 042
     Dates: start: 20131107, end: 20131109
  2. ETOPOSIDE [Suspect]
     Indication: LUNG CARCINOMA CELL TYPE UNSPECIFIED STAGE 0
     Dosage: 185.81 MG, DAILY
     Route: 042
     Dates: start: 20131107, end: 20131109

REACTIONS (1)
  - Leukopenia [Recovered/Resolved]
